FAERS Safety Report 4839678-7 (Version None)
Quarter: 2005Q4

REPORT INFORMATION
  Report Type: 
  Country: None (occurrence: None)
  Receive Date: 20051129
  Receipt Date: 20050527
  Transmission Date: 20060501
  Serious: No
  Sender: FDA-Public Use
  Company Number: US-GLAXOSMITHKLINE-A0560384A

PATIENT
  Age: 57 Year
  Sex: Male

DRUGS (6)
  1. WELLBUTRIN SR [Suspect]
     Indication: DEPRESSION
     Dosage: 150MG TWICE PER DAY
     Route: 048
     Dates: start: 20050501
  2. DEPAKOTE [Concomitant]
  3. RITALIN [Concomitant]
  4. CLONAZEPAM [Concomitant]
  5. NEXIUM [Concomitant]
  6. EFFEXOR [Concomitant]

REACTIONS (3)
  - ABNORMAL DREAMS [None]
  - HYPERHIDROSIS [None]
  - THINKING ABNORMAL [None]
